FAERS Safety Report 12129924 (Version 1)
Quarter: 2016Q1

REPORT INFORMATION
  Report Type: Spontaneous
  Country: US (occurrence: US)
  Receive Date: 20160229
  Receipt Date: 20160229
  Transmission Date: 20160526
  Serious: No
  Sender: FDA-Public Use
  Company Number: US-ASTRAZENECA-2016SE20104

PATIENT
  Sex: Female

DRUGS (1)
  1. NEXIUM 24HR [Suspect]
     Active Substance: ESOMEPRAZOLE MAGNESIUM
     Route: 048

REACTIONS (6)
  - Flatulence [Unknown]
  - Haemorrhoidal haemorrhage [Unknown]
  - Haematochezia [Unknown]
  - Drug ineffective [Unknown]
  - Dry mouth [Unknown]
  - Diarrhoea [Unknown]
